FAERS Safety Report 7831617-X (Version None)
Quarter: 2011Q4

REPORT INFORMATION
  Report Type: 
  Country: None (occurrence: None)
  Receive Date: 20111021
  Receipt Date: 20111011
  Transmission Date: 20120403
  Serious: Yes (Death, Other)
  Sender: FDA-Public Use
  Company Number: PHHY2011SG90889

PATIENT
  Age: 36 Year
  Sex: Female

DRUGS (3)
  1. DEXA [Concomitant]
     Dosage: 2 CYCLES
  2. GLEEVEC [Suspect]
     Indication: ACUTE LYMPHOCYTIC LEUKAEMIA
  3. DASATINIB [Suspect]

REACTIONS (3)
  - MYOPATHY [None]
  - TOXICITY TO VARIOUS AGENTS [None]
  - RESPIRATORY FAILURE [None]
